FAERS Safety Report 10183006 (Version 2)
Quarter: 2014Q2

REPORT INFORMATION
  Report Type: Report from Study
  Country: US (occurrence: US)
  Receive Date: 20140520
  Receipt Date: 20140528
  Transmission Date: 20141212
  Serious: Yes (Hospitalization, Other)
  Sender: FDA-Public Use
  Company Number: US-CELGENEUS-163-20785-14051324

PATIENT
  Age: 86 Year
  Sex: 0

DRUGS (1)
  1. THALOMID [Suspect]
     Indication: PLASMA CELL MYELOMA
     Dosage: 200 MILLIGRAM
     Route: 048
     Dates: start: 20100311, end: 20100330

REACTIONS (2)
  - Pneumonia aspiration [Recovered/Resolved]
  - Cerebrovascular accident [Recovered/Resolved]
